FAERS Safety Report 8797414 (Version 3)
Quarter: 2012Q4

REPORT INFORMATION
  Report Type: 
  Country: US (occurrence: US)
  Receive Date: 20120920
  Receipt Date: 20121025
  Transmission Date: 20130627
  Serious: Yes (Other)
  Sender: FDA-Public Use
  Company Number: US-009507513-1209USA007060

PATIENT
  Sex: Male

DRUGS (4)
  1. REBETOL [Suspect]
     Indication: HEPATITIS C
     Dosage: UNK
     Route: 048
     Dates: start: 20120907, end: 20120907
  2. PEG-INTRON [Suspect]
     Indication: HEPATITIS C
     Dosage: UNK
     Route: 058
     Dates: start: 20120907, end: 20120907
  3. PEG-INTRON [Suspect]
     Dosage: UNK
     Route: 048
     Dates: start: 20120928
  4. VICTRELIS [Suspect]
     Indication: HEPATITIS C
     Dosage: UNK
     Route: 048
     Dates: start: 20121019

REACTIONS (21)
  - Fluid replacement [Unknown]
  - Headache [Unknown]
  - Tremor [Unknown]
  - Vomiting [Unknown]
  - Aphagia [Unknown]
  - Vomiting [Unknown]
  - Weight decreased [Unknown]
  - Drug administration error [Unknown]
  - Tremor [Unknown]
  - Rash [Unknown]
  - Tachycardia [Unknown]
  - Overdose [Unknown]
  - Pain [Unknown]
  - Overdose [Unknown]
  - Feeling hot [Unknown]
  - Heart rate increased [Unknown]
  - Chest pain [Unknown]
  - Decreased appetite [Unknown]
  - Vomiting [Unknown]
  - Vomiting [Unknown]
  - Diarrhoea [Unknown]
